FAERS Safety Report 9607875 (Version 1)
Quarter: 2013Q4

REPORT INFORMATION
  Report Type: Spontaneous
  Country: US (occurrence: None)
  Receive Date: 20131008
  Receipt Date: 20131008
  Transmission Date: 20140711
  Serious: Yes (Other)
  Sender: FDA-Public Use
  Company Number: None

PATIENT
  Age: 46 Year
  Sex: Female
  Weight: 117.94 kg

DRUGS (1)
  1. BUPROPION HCL XL 300MG ACTAVIS [Suspect]
     Indication: DEPRESSION
     Dosage: 1 PILL ONCE DAILY TAKEN BY MOUTH
     Route: 048
     Dates: start: 20131001, end: 20131007

REACTIONS (3)
  - Suicidal ideation [None]
  - Drug ineffective [None]
  - Product substitution issue [None]
